FAERS Safety Report 18115755 (Version 2)
Quarter: 2020Q3

REPORT INFORMATION
  Report Type: Report from Study
  Country: SE (occurrence: SE)
  Receive Date: 20200805
  Receipt Date: 20200811
  Transmission Date: 20201103
  Serious: Yes (Death)
  Sender: FDA-Public Use
  Company Number: SE-FERRINGPH-2020FE05030

PATIENT
  Age: 24 Year
  Sex: Male

DRUGS (1)
  1. SOMATROPIN. [Suspect]
     Active Substance: SOMATROPIN
     Indication: PRODUCT USED FOR UNKNOWN INDICATION
     Dosage: 61.9 UG/KG/DAY
     Route: 065

REACTIONS (2)
  - Overdose [Unknown]
  - Cardiac arrest [Fatal]
